FAERS Safety Report 8135131-6 (Version None)
Quarter: 2012Q1

REPORT INFORMATION
  Report Type: 
  Country: None (occurrence: None)
  Receive Date: 20120210
  Receipt Date: 20120127
  Transmission Date: 20120608
  Serious: Yes (Death)
  Sender: FDA-Public Use
  Company Number: 2012P1003754

PATIENT
  Sex: Male

DRUGS (1)
  1. FENTANYL [Suspect]
     Indication: PAIN
     Dosage: TDER
     Route: 062

REACTIONS (2)
  - MULTIPLE INJURIES [None]
  - OVERDOSE [None]
